FAERS Safety Report 17709353 (Version 1)
Quarter: 2020Q2

REPORT INFORMATION
  Report Type: Spontaneous
  Country: US (occurrence: US)
  Receive Date: 20200426
  Receipt Date: 20200426
  Transmission Date: 20200714
  Serious: Yes (Life-Threatening, Hospitalization, Other)
  Sender: FDA-Public Use
  Company Number: US-AUROBINDO-AUR-APL-2020-019996

PATIENT
  Age: 4 Year
  Sex: Female

DRUGS (3)
  1. TRAMETINIB [Suspect]
     Active Substance: TRAMETINIB
     Indication: EVIDENCE BASED TREATMENT
     Dosage: 1 MILLIGRAM, ONCE A DAY
     Route: 065
     Dates: start: 201802, end: 2018
  2. DEXAMETHASONE. [Suspect]
     Active Substance: DEXAMETHASONE
     Indication: BRAIN OEDEMA
     Dosage: 0.5 MILLIGRAM
     Route: 065
     Dates: start: 201802
  3. DEXAMETHASONE. [Suspect]
     Active Substance: DEXAMETHASONE
     Indication: HEADACHE

REACTIONS (4)
  - Wound dehiscence [Recovered/Resolved]
  - Pneumocephalus [Recovered/Resolved]
  - Skin toxicity [Recovered/Resolved]
  - Impaired healing [Recovered/Resolved]

NARRATIVE: CASE EVENT DATE: 201803
